FAERS Safety Report 11179075 (Version 1)
Quarter: 2015Q2

REPORT INFORMATION
  Report Type: Spontaneous
  Country: GB (occurrence: GB)
  Receive Date: 20150610
  Receipt Date: 20150610
  Transmission Date: 20150821
  Serious: Yes (Other)
  Sender: FDA-Public Use
  Company Number: GB-BAXTER-2015BAX030783

PATIENT

DRUGS (2)
  1. ZINACEF [Suspect]
     Active Substance: CEFUROXIME SODIUM
     Indication: PRODUCT USED FOR UNKNOWN INDICATION
     Route: 065
  2. WATER FOR INJECTION [Suspect]
     Active Substance: WATER
     Indication: PRODUCT USED FOR UNKNOWN INDICATION
     Route: 065

REACTIONS (5)
  - Corneal oedema [Recovering/Resolving]
  - Incorrect route of drug administration [Unknown]
  - Product quality issue [Unknown]
  - Vision blurred [Unknown]
  - Corneal opacity [Recovered/Resolved]
